FAERS Safety Report 18126563 (Version 1)
Quarter: 2020Q3

REPORT INFORMATION
  Report Type: Spontaneous
  Country: CA (occurrence: CA)
  Receive Date: 20200808
  Receipt Date: 20200808
  Transmission Date: 20201103
  Serious: Yes (Death, Hospitalization, Other)
  Sender: FDA-Public Use
  Company Number: CA-TEVA-2020-CA-1811294

PATIENT
  Age: 71 Year
  Sex: Male

DRUGS (6)
  1. CINACALCET HYDROCHLORIDE. [Suspect]
     Active Substance: CINACALCET HYDROCHLORIDE
     Indication: HYPERPARATHYROIDISM
     Dosage: 30 MILLIGRAM DAILY;
     Route: 065
  2. CINACALCET HYDROCHLORIDE. [Suspect]
     Active Substance: CINACALCET HYDROCHLORIDE
     Dosage: 60 MILLIGRAM DAILY;
     Route: 065
  3. XGEVA [Suspect]
     Active Substance: DENOSUMAB
     Indication: HYPERCALCAEMIA
     Dosage: SOLUTION SUBCUTANEOUS
     Route: 058
  4. PAMIDRONATE DISODIUM. [Concomitant]
     Active Substance: PAMIDRONATE DISODIUM
     Indication: HYPERCALCAEMIA
  5. CINACALCET HYDROCHLORIDE. [Suspect]
     Active Substance: CINACALCET HYDROCHLORIDE
     Dosage: 120 MILLIGRAM DAILY;
     Route: 065
  6. CINACALCET HYDROCHLORIDE. [Suspect]
     Active Substance: CINACALCET HYDROCHLORIDE
     Route: 065

REACTIONS (10)
  - Infection [Fatal]
  - Anuria [Fatal]
  - Gastrointestinal disorder [Fatal]
  - Hypercalcaemia [Fatal]
  - Hypoalbuminaemia [Fatal]
  - Hypocalcaemia [Fatal]
  - Acute myocardial infarction [Fatal]
  - Mobility decreased [Fatal]
  - Drug ineffective for unapproved indication [Fatal]
  - Off label use [Fatal]
